FAERS Safety Report 14758252 (Version 1)
Quarter: 2018Q2

REPORT INFORMATION
  Report Type: Not Available
  Country: DK (occurrence: DK)
  Receive Date: 20180413
  Receipt Date: 20180413
  Transmission Date: 20180711
  Serious: Yes (Other)
  Sender: FDA-Public Use
  Company Number: DK-SYNTHON BV-NL01PV18_46839

PATIENT
  Age: 76 Year
  Sex: Male

DRUGS (2)
  1. TAMSULOSIN TEVA [Suspect]
     Active Substance: TAMSULOSIN
     Indication: BENIGN PROSTATIC HYPERPLASIA
     Dosage: 0,4 MG, DAILY
     Route: 048
     Dates: start: 20180303, end: 20180320
  2. ALLOPURINOL. [Concomitant]
     Active Substance: ALLOPURINOL
     Indication: GOUT
     Dosage: 200 MG DAILY
     Route: 048
     Dates: start: 20161111

REACTIONS (3)
  - Muscle swelling [Recovering/Resolving]
  - Eye swelling [Recovered/Resolved]
  - Hyperkalaemia [Recovering/Resolving]

NARRATIVE: CASE EVENT DATE: 20180303
